FAERS Safety Report 4503617-9 (Version None)
Quarter: 2004Q4

REPORT INFORMATION
  Report Type: 
  Country: None (occurrence: None)
  Receive Date: 20041115
  Receipt Date: 20041108
  Transmission Date: 20050328
  Serious: Yes (Life-Threatening, Hospitalization)
  Sender: FDA-Public Use
  Company Number: HQWYE722812OCT04

PATIENT
  Age: 2 Year
  Sex: Female

DRUGS (3)
  1. CHILDREN'S ADVIL [Suspect]
     Indication: PYREXIA
     Dosage: ORAL
     Route: 048
  2. AUGMENTIN [Suspect]
     Indication: PLEURAL DISORDER
     Dosage: ORAL
     Route: 048
     Dates: start: 20040704, end: 20040706
  3. PARACETAMOL        (PARACETAMOL) [Suspect]
     Indication: PYREXIA
     Dosage: ORAL
     Route: 048

REACTIONS (10)
  - BACTERIAL INFECTION [None]
  - BLOOD IMMUNOGLOBULIN A DECREASED [None]
  - C-REACTIVE PROTEIN INCREASED [None]
  - DISEASE RECURRENCE [None]
  - HAEMOTHORAX [None]
  - LABORATORY TEST ABNORMAL [None]
  - OXYGEN SATURATION DECREASED [None]
  - PLEURAL EFFUSION [None]
  - PNEUMOCOCCAL INFECTION [None]
  - PNEUMONIA [None]
